FAERS Safety Report 16150020 (Version 2)
Quarter: 2019Q3

REPORT INFORMATION
  Report Type: Report from Study
  Country: US (occurrence: US)
  Receive Date: 20190402
  Receipt Date: 20190710
  Transmission Date: 20191004
  Serious: Yes (Hospitalization)
  Sender: FDA-Public Use
  Company Number: PHEH2019US014281

PATIENT
  Age: 61 Year
  Sex: Female

DRUGS (2)
  1. GILENYA [Suspect]
     Active Substance: FINGOLIMOD HYDROCHLORIDE
     Indication: MULTIPLE SCLEROSIS
     Dosage: 0.5 MG, QD
     Route: 048
     Dates: start: 20170628
  2. GILENYA [Suspect]
     Active Substance: FINGOLIMOD HYDROCHLORIDE
     Dosage: 0.5 MG, QOD
     Route: 048
     Dates: start: 201903

REACTIONS (3)
  - Prescribed underdose [Unknown]
  - Liver function test abnormal [Unknown]
  - Multiple sclerosis relapse [Recovering/Resolving]

NARRATIVE: CASE EVENT DATE: 20190607
